FAERS Safety Report 11023472 (Version 3)
Quarter: 2015Q3

REPORT INFORMATION
  Report Type: Spontaneous
  Country: US (occurrence: US)
  Receive Date: 20150413
  Receipt Date: 20150706
  Transmission Date: 20151125
  Serious: No
  Sender: FDA-Public Use
  Company Number: US-009507513-1504USA000437

PATIENT
  Age: 14 Year
  Sex: Female

DRUGS (2)
  1. NEXPLANON [Suspect]
     Active Substance: ETONOGESTREL
     Dosage: UNK
     Route: 059
     Dates: start: 20150313
  2. NEXPLANON [Suspect]
     Active Substance: ETONOGESTREL
     Dosage: UNK
     Route: 059
     Dates: start: 20150313

REACTIONS (6)
  - Medical device complication [Recovering/Resolving]
  - Overdose [Unknown]
  - Device difficult to use [Recovering/Resolving]
  - No adverse event [Unknown]
  - Product quality issue [Unknown]
  - Device deployment issue [Recovering/Resolving]

NARRATIVE: CASE EVENT DATE: 20150313
